FAERS Safety Report 13491304 (Version 3)
Quarter: 2018Q1

REPORT INFORMATION
  Report Type: Spontaneous
  Country: JP (occurrence: JP)
  Receive Date: 20170427
  Receipt Date: 20180206
  Transmission Date: 20180508
  Serious: Yes (Hospitalization)
  Sender: FDA-Public Use
  Company Number: JP-BAYER-2017-074720

PATIENT
  Age: 73 Year
  Sex: Male
  Weight: 49.2 kg

DRUGS (38)
  1. NEXIUM [Concomitant]
     Active Substance: ESOMEPRAZOLE MAGNESIUM
     Dosage: DAILY DOSE 20 MG
     Route: 048
  2. LEUPRORELIN [Concomitant]
     Active Substance: LEUPROLIDE ACETATE
     Dosage: UNK
  3. FENTANYL CITRATE. [Concomitant]
     Active Substance: FENTANYL CITRATE
     Dosage: DAILY DOSE 2 MG
     Route: 003
     Dates: start: 20170208
  4. OXINORM [OXYCODONE HYDROCHLORIDE] [Concomitant]
  5. LYRICA [Concomitant]
     Active Substance: PREGABALIN
     Dosage: DAILY DOSE 100 MG
     Route: 048
     Dates: start: 20170130, end: 20170203
  6. ZOLEDRONIC ACID [Concomitant]
     Active Substance: ZOLEDRONIC ACID
     Dosage: 4 MG, Q4WK
     Dates: start: 20170303
  7. PRIMPERAN [Concomitant]
     Active Substance: METOCLOPRAMIDE HYDROCHLORIDE
     Dosage: DAILY DOSE 10 MG
     Dates: start: 20170329, end: 20170401
  8. XOFIGO [Suspect]
     Active Substance: RADIUM RA-223 DICHLORIDE
     Indication: METASTASES TO BONE
     Dosage: UNK, ONCE
     Route: 042
     Dates: start: 20161227, end: 20161227
  9. NOVAMIN (PROCHLORPERAZINE MALEATE) [Concomitant]
     Active Substance: PROCHLORPERAZINE MALEATE
     Dosage: UNK
     Route: 048
     Dates: start: 20170205, end: 20170211
  10. TRAVELMIN [Concomitant]
     Active Substance: DIMENHYDRINATE
     Dosage: DAILY DOSE 3 T
     Route: 048
     Dates: start: 20170407, end: 20170410
  11. MAGNESIUM OXIDE. [Concomitant]
     Active Substance: MAGNESIUM OXIDE
     Dosage: DAILY DOSE 990 MG
     Route: 048
     Dates: start: 20170130
  12. TRAMAL [Concomitant]
     Active Substance: TRAMADOL
     Dosage: DAILY DOSE 25 MG
     Route: 048
     Dates: start: 20170128, end: 20170129
  13. DIASTASE [Concomitant]
     Active Substance: DIASTASE
     Dosage: DAILY DOSE 3.9 G
     Route: 048
     Dates: start: 20170312
  14. AMITIZA [Concomitant]
     Active Substance: LUBIPROSTONE
     Dosage: DAILY DOSE 48 ?G
     Route: 048
     Dates: start: 20170203
  15. BETANIS [Concomitant]
     Active Substance: MIRABEGRON
     Dosage: DAILY DOSE 50 MG
     Route: 048
     Dates: start: 20170403
  16. XOFIGO [Suspect]
     Active Substance: RADIUM RA-223 DICHLORIDE
     Indication: HORMONE-REFRACTORY PROSTATE CANCER
     Dosage: UNK, ONCE
     Route: 042
     Dates: start: 20170223, end: 20170223
  17. REBAMIPIDE [Concomitant]
     Active Substance: REBAMIPIDE
     Dosage: DAILY DOSE 300 MG
     Route: 048
     Dates: start: 20170210, end: 20170216
  18. SODIUM PICOSULFATE [Concomitant]
     Active Substance: SODIUM PICOSULFATE
     Dosage: UNK
     Route: 048
     Dates: start: 20170206, end: 20170207
  19. VEEN 3G [Concomitant]
     Dosage: DAILY DOSE 500 ML
     Dates: start: 20170313, end: 20170404
  20. OXYCONTIN [Concomitant]
     Active Substance: OXYCODONE HYDROCHLORIDE
     Dosage: DAILY DOSE 10 MG
     Route: 048
     Dates: start: 20170130, end: 20170205
  21. SULPIRIDE [Concomitant]
     Active Substance: SULPIRIDE
     Dosage: DAILY DOSE 100 MG
     Route: 048
     Dates: start: 20170410
  22. VEEN 3G [Concomitant]
     Dosage: DAILY DOSE 1000 ML
     Dates: start: 20170208, end: 20170217
  23. VEEN-F [Concomitant]
     Active Substance: CALCIUM CHLORIDE\MAGNESIUM CHLORIDE\POTASSIUM CHLORIDE\SODIUM ACETATE\SODIUM CHLORIDE
     Dosage: DAILY DOSE 500 ML
     Dates: start: 20170313, end: 20170331
  24. CALONAL [Concomitant]
     Active Substance: ACETAMINOPHEN
     Dosage: DAILY DOSE 900 MG
     Route: 048
     Dates: end: 20170202
  25. MELOXICAM. [Concomitant]
     Active Substance: MELOXICAM
     Dosage: DAILY DOSE 15 MG
     Route: 048
     Dates: start: 20170130, end: 20170203
  26. XOFIGO [Suspect]
     Active Substance: RADIUM RA-223 DICHLORIDE
     Indication: HORMONE-REFRACTORY PROSTATE CANCER
     Dosage: UNK, ONCE
     Route: 042
     Dates: start: 20170323, end: 20170323
  27. CALONAL [Concomitant]
     Active Substance: ACETAMINOPHEN
     Dosage: DAILY DOSE 1500 MG
     Route: 048
     Dates: start: 20170203
  28. FENTANYL CITRATE. [Concomitant]
     Active Substance: FENTANYL CITRATE
     Dosage: DAILY DOSE 1 MG
     Route: 003
     Dates: start: 20170205, end: 20170207
  29. GASMOTIN [Concomitant]
     Active Substance: MOSAPRIDE CITRATE
     Dosage: DAILY DOSE 15 MG
     Route: 048
     Dates: start: 20170309, end: 20170330
  30. XOFIGO [Suspect]
     Active Substance: RADIUM RA-223 DICHLORIDE
     Indication: HORMONE-REFRACTORY PROSTATE CANCER
     Dosage: UNK, ONCE
     Route: 042
     Dates: start: 20161201, end: 20161201
  31. XOFIGO [Suspect]
     Active Substance: RADIUM RA-223 DICHLORIDE
     Indication: HORMONE-REFRACTORY PROSTATE CANCER
     Dosage: UNK, ONCE
     Route: 042
     Dates: start: 20170126, end: 20170126
  32. PREDONINE [Concomitant]
     Active Substance: PREDNISOLONE
     Dosage: DAILY DOSE 10 MG
     Route: 048
  33. LOXOPROFEN [Concomitant]
     Active Substance: LOXOPROFEN
     Dosage: DAILY DOSE 60 MG
     Route: 048
     Dates: start: 20170126, end: 20170127
  34. ZYPREXA [Concomitant]
     Active Substance: OLANZAPINE
     Dosage: DAILY DOSE 2.5 MG
     Route: 048
     Dates: start: 20170210, end: 20170403
  35. OXINORM [OXYCODONE HYDROCHLORIDE] [Concomitant]
     Dosage: DAILY DOSE 5 MG
     Route: 048
     Dates: start: 20170208
  36. GLACTIV [Concomitant]
     Active Substance: SITAGLIPTIN
     Dosage: DAILY DOSE 50 MG
     Route: 048
     Dates: start: 20170221
  37. HIRUDOID [Concomitant]
     Active Substance: GLYCOSAMINOGLYCANS
     Dosage: UNK UNK, PRN
     Route: 003
     Dates: start: 20170206, end: 20170207
  38. VITAMEDIN [Concomitant]
     Active Substance: CYANOCOBALAMIN\PYRIDOXINE HYDROCHLORIDE\THIAMINE
     Dosage: DAILY DOSE 1 DF
     Dates: start: 20170313, end: 20170404

REACTIONS (4)
  - Hormone-refractory prostate cancer [None]
  - Decreased appetite [Recovered/Resolved]
  - Spinal compression fracture [Recovered/Resolved with Sequelae]
  - Nausea [Recovered/Resolved]

NARRATIVE: CASE EVENT DATE: 20170203
